FAERS Safety Report 8952989 (Version 1)
Quarter: 2012Q4

REPORT INFORMATION
  Report Type: 
  Country: US (occurrence: US)
  Receive Date: 20121205
  Receipt Date: 20121205
  Transmission Date: 20130627
  Serious: No
  Sender: FDA-Public Use
  Company Number: US-TEVA-371532USA

PATIENT
  Age: 59 Year
  Sex: Female
  Weight: 85.35 kg

DRUGS (10)
  1. NUVIGIL [Suspect]
     Indication: SLEEP DISORDER
     Dosage: QAM
     Route: 048
     Dates: start: 20121026, end: 20121107
  2. LOSARTAN HCTZ [Concomitant]
     Indication: HYPERTENSION
     Dosage: QAM
     Route: 048
  3. LOSARTAN HCTZ [Concomitant]
  4. BYSTOLIC [Concomitant]
     Indication: HYPERTENSION
     Dosage: QAM
     Route: 048
  5. PRAVASTATIN [Concomitant]
     Indication: BLOOD CHOLESTEROL INCREASED
     Route: 048
     Dates: start: 2012
  6. LUNESTA [Concomitant]
     Indication: SLEEP DISORDER
     Dosage: QHS
     Route: 048
     Dates: start: 2012
  7. SILENOR [Concomitant]
     Indication: SLEEP DISORDER
     Dosage: QHS
     Route: 048
     Dates: start: 2012
  8. XOPENEX [Concomitant]
     Indication: ASTHMA
     Dosage: PRN rescue inhaler
  9. ASTHMANEX [Concomitant]
     Indication: ASTHMA
     Dosage: BID
     Route: 055
  10. ASA [Concomitant]
     Indication: THROMBOSIS
     Dosage: QD
     Route: 048

REACTIONS (1)
  - Rash [Recovering/Resolving]
